FAERS Safety Report 24531435 (Version 2)
Quarter: 2024Q4

REPORT INFORMATION
  Report Type: Spontaneous
  Country: AU (occurrence: AU)
  Receive Date: 20241022
  Receipt Date: 20241122
  Transmission Date: 20250115
  Serious: Yes (Life-Threatening, Hospitalization, Other)
  Sender: ALEXION PHARMACEUTICALS
  Company Number: AU-ASTRAZENECA-202410OCE008867AU

PATIENT
  Age: 54 Year

DRUGS (8)
  1. ANDEXXA [Suspect]
     Active Substance: ANDEXANET ALFA
     Indication: Haemorrhage intracranial
     Dosage: 400 MICROGRAM AT 383 MINUTES
     Route: 065
  2. ANDEXXA [Suspect]
     Active Substance: ANDEXANET ALFA
     Dosage: 400 MICROGRAM AT 383 MINUTES
  3. ANDEXXA [Suspect]
     Active Substance: ANDEXANET ALFA
     Dosage: 400 MICROGRAM AT 383 MINUTES
     Route: 065
  4. ANDEXXA [Suspect]
     Active Substance: ANDEXANET ALFA
     Dosage: 400 MICROGRAM AT 383 MINUTES
  5. ANDEXXA [Suspect]
     Active Substance: ANDEXANET ALFA
     Dosage: 480 MICROGRAM AT 397MINUTES
     Route: 065
  6. ANDEXXA [Suspect]
     Active Substance: ANDEXANET ALFA
     Dosage: 480 MICROGRAM AT 397MINUTES
  7. ANDEXXA [Suspect]
     Active Substance: ANDEXANET ALFA
     Dosage: 480 MICROGRAM AT 397MINUTES
     Route: 065
  8. ANDEXXA [Suspect]
     Active Substance: ANDEXANET ALFA
     Dosage: 480 MICROGRAM AT 397MINUTES

REACTIONS (1)
  - Lower respiratory tract infection [Unknown]
